FAERS Safety Report 6198002-0 (Version None)
Quarter: 2009Q2

REPORT INFORMATION
  Report Type: 
  Country: None (occurrence: None)
  Receive Date: 20090513
  Receipt Date: 20090429
  Transmission Date: 20091009
  Serious: Yes (Other)
  Sender: FDA-Public Use
  Company Number: GAM-072-09-US

PATIENT
  Age: 39 Year
  Sex: Female

DRUGS (2)
  1. OCTAGAM [Suspect]
     Indication: AUTOIMMUNE DISORDER
     Dosage: 25 GM EVERY MONTH IV
     Route: 042
     Dates: start: 20081201, end: 20090401
  2. OCTAGAM [Suspect]
     Indication: HABITUAL ABORTION
     Dosage: 25 GM EVERY MONTH IV
     Route: 042
     Dates: start: 20081201, end: 20090401

REACTIONS (2)
  - HEPATITIS A ANTIBODY POSITIVE [None]
  - HEPATITIS B ANTIBODY POSITIVE [None]
